FAERS Safety Report 25073068 (Version 1)
Quarter: 2025Q1

REPORT INFORMATION
  Report Type: Spontaneous
  Country: DE (occurrence: DE)
  Receive Date: 20250313
  Receipt Date: 20250313
  Transmission Date: 20250408
  Serious: Yes (Other)
  Sender: SANOFI AVENTIS
  Company Number: DE-SANOFI-02440959

PATIENT
  Sex: Male

DRUGS (1)
  1. LEMTRADA [Suspect]
     Active Substance: ALEMTUZUMAB
     Indication: Leukaemia
     Route: 042

REACTIONS (4)
  - Atrial fibrillation [Unknown]
  - Fluid retention [Unknown]
  - Hypertension [Unknown]
  - Product use in unapproved indication [Unknown]
